FAERS Safety Report 7546798-5 (Version None)
Quarter: 2011Q2

REPORT INFORMATION
  Report Type: 
  Country: None (occurrence: None)
  Receive Date: 20110614
  Receipt Date: 20110607
  Transmission Date: 20111010
  Serious: Yes (Hospitalization)
  Sender: FDA-Public Use
  Company Number: SE-ROCHE-781018

PATIENT
  Age: 18 Year
  Sex: Female

DRUGS (7)
  1. OXYCONTIN [Concomitant]
  2. METADON [Concomitant]
  3. AVASTIN [Suspect]
     Indication: NEOPLASM MALIGNANT
     Dosage: FORM : INFUSION , DOSE : 560 MG1 STRENGTH : 25 MG PER ML
     Route: 042
     Dates: start: 20110506, end: 20110506
  4. CELEBREX [Concomitant]
  5. ALVEDON [Concomitant]
  6. HERACILLIN [Concomitant]
  7. OXYCODONE HCL [Concomitant]

REACTIONS (1)
  - PNEUMOTHORAX [None]
